FAERS Safety Report 8290108-5 (Version None)
Quarter: 2012Q2

REPORT INFORMATION
  Report Type: 
  Country: None (occurrence: None)
  Receive Date: 20120417
  Receipt Date: 20120410
  Transmission Date: 20120825
  Serious: Yes (Other)
  Sender: FDA-Public Use
  Company Number: PHHY2012VE031601

PATIENT
  Sex: Male

DRUGS (5)
  1. DIOVAN HCT [Suspect]
     Indication: HYPERTENSION
     Dosage: 1 DF (160/12.5 MG), QD
  2. KIADON [Concomitant]
     Dosage: 40 MG, QD
  3. CORASPIRINA [Concomitant]
     Dosage: 81 MG, UNK
  4. ADALAT [Concomitant]
     Dosage: 30 MG, UNK
  5. CLOBETASOL PROPIONATE [Concomitant]
     Indication: PSORIASIS

REACTIONS (1)
  - CEREBROVASCULAR ACCIDENT [None]
